FAERS Safety Report 6019623-1 (Version None)
Quarter: 2008Q4

REPORT INFORMATION
  Report Type: 
  Country: None (occurrence: None)
  Receive Date: 20081224
  Receipt Date: 20081216
  Transmission Date: 20090506
  Serious: Yes (Death)
  Sender: FDA-Public Use
  Company Number: US-ELI_LILLY_AND_COMPANY-US200812004474

PATIENT
  Sex: Male

DRUGS (15)
  1. ZYPREXA [Suspect]
     Dosage: 1 D/F, UNK
     Dates: start: 20080807, end: 20080101
  2. ZYPREXA [Suspect]
     Dosage: 15 MG, DAILY (1/D)
     Dates: start: 20080101
  3. CYMBALTA [Suspect]
     Indication: FAILURE TO THRIVE
     Dosage: 1 D/F, UNK
     Dates: start: 20050601, end: 20080101
  4. CYMBALTA [Suspect]
     Dosage: 60 MG, 2/D
     Dates: start: 20080101
  5. SYNTHROID [Concomitant]
  6. LYRICA [Concomitant]
  7. CYTOMEL [Concomitant]
  8. DILAUDID [Concomitant]
  9. TESTOSTERONE [Concomitant]
  10. MS CONTIN [Concomitant]
  11. PROVIGIL [Concomitant]
  12. VITAMIN B-12 [Concomitant]
  13. ACIPHEX [Concomitant]
  14. CLONOPIN [Concomitant]
  15. VITAMIN D [Concomitant]

REACTIONS (1)
  - DEATH [None]
